FAERS Safety Report 8362916-3 (Version None)
Quarter: 2012Q2

REPORT INFORMATION
  Report Type: 
  Country: None (occurrence: None)
  Receive Date: 20120514
  Receipt Date: 20120501
  Transmission Date: 20120825
  Serious: Yes (Other)
  Sender: FDA-Public Use
  Company Number: 2011MA002699

PATIENT
  Sex: Female

DRUGS (32)
  1. GLIPIZIDE [Concomitant]
  2. LISINOPRIL [Concomitant]
  3. PREVACID [Concomitant]
  4. DOC-Q-LACE [Concomitant]
  5. AMLODIPINE BESYLATE [Concomitant]
  6. CYCLOBENZAPRINE [Concomitant]
  7. CLONIDINE [Concomitant]
  8. POTASSIUM CHLORIDE [Concomitant]
  9. LANTUS [Concomitant]
  10. HECTOROL [Concomitant]
  11. PROMETHAZINE [Concomitant]
  12. ALLOPURINOL [Concomitant]
  13. RANITIDINE [Concomitant]
  14. ACTOS [Concomitant]
  15. HUMULIN R [Concomitant]
  16. PLAVIX [Concomitant]
  17. PROPOXYPHENE N-100/APAP [Concomitant]
  18. LEXAPRO [Concomitant]
  19. RELPAX [Concomitant]
  20. CIPROFLOXACIN [Concomitant]
  21. ZEMPLAR [Concomitant]
  22. REQUIP [Concomitant]
  23. LOTREL [Concomitant]
  24. FLUCONAZOLE [Concomitant]
  25. CALCIUM ACETATE [Concomitant]
  26. FOSRENOL [Concomitant]
  27. LIPITOR [Concomitant]
  28. METOCLOPRAMIDE [Suspect]
     Dosage: 5 MG;QID FOR 14 DAYS;PO
     Route: 048
     Dates: start: 20030601, end: 20100328
  29. PHOSLO [Concomitant]
  30. OMEPRAZOLE [Concomitant]
  31. NEXIUM [Concomitant]
  32. GLIMEPIRIDE [Concomitant]

REACTIONS (9)
  - EMOTIONAL DISORDER [None]
  - ECONOMIC PROBLEM [None]
  - INJURY [None]
  - EXTRAPYRAMIDAL DISORDER [None]
  - TARDIVE DYSKINESIA [None]
  - RESTLESS LEGS SYNDROME [None]
  - DYSTONIA [None]
  - AKATHISIA [None]
  - TREMOR [None]
